FAERS Safety Report 7138652-8 (Version None)
Quarter: 2010Q4

REPORT INFORMATION
  Report Type: 
  Country: None (occurrence: None)
  Receive Date: 20101122
  Receipt Date: 20101112
  Transmission Date: 20110411
  Serious: Yes (Death, Hospitalization, Other)
  Sender: FDA-Public Use
  Company Number: 20109337

PATIENT
  Age: 67 Year
  Sex: Male

DRUGS (1)
  1. LIORESAL [Suspect]
     Indication: MUSCLE SPASTICITY
     Dosage: 300 MG, DAILY, INTRATHECAL
     Route: 037

REACTIONS (2)
  - DEVICE RELATED INFECTION [None]
  - WOUND DEHISCENCE [None]
